FAERS Safety Report 10716831 (Version 2)
Quarter: 2017Q3

REPORT INFORMATION
  Report Type: Spontaneous
  Country: BR (occurrence: BR)
  Receive Date: 20150116
  Receipt Date: 20170721
  Transmission Date: 20171127
  Serious: Yes (Hospitalization, Other)
  Sender: FDA-Public Use
  Company Number: BR-PFIZER INC-2015013086

PATIENT
  Age: 47 Year
  Sex: Male
  Weight: 59.5 kg

DRUGS (1)
  1. SUTENT [Suspect]
     Active Substance: SUNITINIB MALATE
     Indication: RENAL CELL CARCINOMA
     Dosage: 50 MG, CYCLE (4X2)
     Route: 048
     Dates: start: 20130215

REACTIONS (2)
  - Appendicitis [Unknown]
  - Drug dose omission [Unknown]
